FAERS Safety Report 17273135 (Version 1)
Quarter: 2020Q1

REPORT INFORMATION
  Report Type: Spontaneous
  Country: US (occurrence: US)
  Receive Date: 20200115
  Receipt Date: 20200115
  Transmission Date: 20200409
  Serious: Yes (Other)
  Sender: FDA-Public Use
  Company Number: US-009507513-2001USA003937

PATIENT
  Sex: Male

DRUGS (2)
  1. BCG VACCINE USP [Suspect]
     Active Substance: BCG VACCINE
     Indication: TUBERCULOSIS BLADDER
     Dates: start: 1958
  2. COZAAR [Suspect]
     Active Substance: LOSARTAN POTASSIUM
     Dosage: UNK
     Route: 048
     Dates: start: 2012

REACTIONS (2)
  - Renal failure [Unknown]
  - Bladder cancer [Unknown]
